FAERS Safety Report 6553032-1 (Version None)
Quarter: 2010Q1

REPORT INFORMATION
  Report Type: 
  Country: None (occurrence: None)
  Receive Date: 20100122
  Receipt Date: 20100106
  Transmission Date: 20100710
  Serious: Yes (Hospitalization)
  Sender: FDA-Public Use
  Company Number: 2010AC000026

PATIENT
  Age: 58 Year
  Sex: Male
  Weight: 132.4503 kg

DRUGS (17)
  1. DIGOXIN [Suspect]
     Dosage: 250 MCG; QD; PO
     Route: 048
     Dates: start: 20030301, end: 20090101
  2. NITROGLYCERIN [Concomitant]
  3. ALTACE [Concomitant]
  4. ASPIRIN [Concomitant]
  5. SPIRONOLACTONE [Concomitant]
  6. LASIX [Concomitant]
  7. COREG [Concomitant]
  8. AMIODARONE HCL [Concomitant]
  9. ISOSORBIDE DINITRATE [Concomitant]
  10. LIPITOR [Concomitant]
  11. MEXILATINE [Concomitant]
  12. COREG [Concomitant]
  13. ASPIRIN [Concomitant]
  14. FUROSEMIDE [Concomitant]
  15. SPIRONOLACTONE [Concomitant]
  16. ALTACE [Concomitant]
  17. LISINOPRIL [Concomitant]

REACTIONS (11)
  - CARDIAC FAILURE CONGESTIVE [None]
  - ECONOMIC PROBLEM [None]
  - EMOTIONAL DISORDER [None]
  - FLATULENCE [None]
  - HYPERLIPIDAEMIA [None]
  - HYPOTENSION [None]
  - INJURY [None]
  - ISCHAEMIC CARDIOMYOPATHY [None]
  - PAIN [None]
  - PHOTOSENSITIVITY REACTION [None]
  - WEIGHT INCREASED [None]
